FAERS Safety Report 15487937 (Version 1)
Quarter: 2018Q4

REPORT INFORMATION
  Report Type: Spontaneous
  Country: US (occurrence: US)
  Receive Date: 20181011
  Receipt Date: 20181011
  Transmission Date: 20190205
  Serious: Yes (Hospitalization)
  Sender: FDA-Public Use
  Company Number: None

PATIENT
  Sex: Female

DRUGS (6)
  1. AMLODIPINE, BENADRYL [Concomitant]
  2. PROAIR, SUMATRIPTAN [Concomitant]
  3. HUMIRA [Suspect]
     Active Substance: ADALIMUMAB
     Indication: PSORIASIS
     Dosage: ?          OTHER FREQUENCY:WEEKLY;?
     Route: 058
     Dates: start: 20170516
  4. CLARITIN, CYCLOSPORINE [Concomitant]
  5. SYMBICORT, ZYRTEC [Concomitant]
  6. ISRADIPINE, METFORMIN [Concomitant]

REACTIONS (3)
  - Product dose omission [None]
  - Headache [None]
  - Pneumonia [None]
